FAERS Safety Report 5024198-X (Version None)
Quarter: 2006Q2

REPORT INFORMATION
  Report Type: 
  Country: None (occurrence: None)
  Receive Date: 20060428
  Receipt Date: 20050401
  Transmission Date: 20061013
  Serious: Yes (Death)
  Sender: FDA-Public Use
  Company Number: 2005P1000207

PATIENT
  Age: 31 Year
  Sex: Male

DRUGS (14)
  1. BUSULFAN (BUSULFAN) [Suspect]
     Indication: BONE MARROW CONDITIONING REGIMEN
     Dosage: 300 MG; QD;
     Dates: start: 20021205, end: 20021208
  2. CYCLOPHOSPHAMIDE [Concomitant]
  3. MESNA [Concomitant]
  4. PHENYTOIN [Concomitant]
  5. ZOFRAN [Concomitant]
  6. HEPARIN [Concomitant]
  7. GRASIN [Concomitant]
  8. ANTIBIOTICS [Concomitant]
  9. ANTIFUNGALS [Concomitant]
  10. METHYLPREDNISOLONE [Concomitant]
  11. CYCLOSPORINE [Concomitant]
  12. ATGAM [Concomitant]
  13. FK506 [Concomitant]
  14. THALIDOMIDE [Concomitant]

REACTIONS (1)
  - GRAFT VERSUS HOST DISEASE [None]
